FAERS Safety Report 4336803-1 (Version None)
Quarter: 2004Q2

REPORT INFORMATION
  Report Type: 
  Country: None (occurrence: None)
  Receive Date: 20040407
  Receipt Date: 20040329
  Transmission Date: 20050107
  Serious: Yes (Hospitalization, Other)
  Sender: FDA-Public Use
  Company Number: US-JNJFOC-20040102792

PATIENT
  Age: 66 Year
  Sex: Female
  Weight: 68.0396 kg

DRUGS (10)
  1. TOPAMAX [Suspect]
     Indication: MIGRAINE
     Dosage: 50 MG, 2 IN 1 DAY, ORAL
     Route: 048
     Dates: start: 20021112
  2. ANAPROX [Concomitant]
  3. AMERGE [Concomitant]
  4. TAMOXIFEN (TAMOXIFEN) [Concomitant]
  5. LIPITOR [Concomitant]
  6. VERAPAMIL [Concomitant]
  7. FOSAMAX [Concomitant]
  8. VITAMIN C (ASCORBIC ACID) [Concomitant]
  9. VITAMIN D [Concomitant]
  10. CALCIUM [Concomitant]

REACTIONS (7)
  - DEMYELINATION [None]
  - ELECTRIC SHOCK [None]
  - MUSCLE CRAMP [None]
  - MYALGIA [None]
  - NEUROPATHY [None]
  - PAIN [None]
  - PAIN IN EXTREMITY [None]
